FAERS Safety Report 22021316 (Version 1)
Quarter: 2023Q1

REPORT INFORMATION
  Report Type: Spontaneous
  Country: US (occurrence: None)
  Receive Date: 20230218
  Receipt Date: 20230218
  Transmission Date: 20230418
  Serious: Yes (Hospitalization)
  Sender: FDA-Public Use
  Company Number: None

PATIENT
  Age: 40 Year
  Sex: Male
  Weight: 95.71 kg

DRUGS (2)
  1. INFLECTRA [Suspect]
     Active Substance: INFLIXIMAB-DYYB
     Dosage: FREQUENCY : MONTHLY;?
     Route: 042
     Dates: start: 20230203
  2. INFLECTRA [Concomitant]
     Active Substance: INFLIXIMAB-DYYB
     Dates: start: 20230203, end: 20230218

REACTIONS (2)
  - Anxiety [None]
  - Infusion related reaction [None]

NARRATIVE: CASE EVENT DATE: 20230218
